FAERS Safety Report 12331599 (Version 1)
Quarter: 2016Q2

REPORT INFORMATION
  Report Type: Spontaneous
  Country: US (occurrence: US)
  Receive Date: 20160504
  Receipt Date: 20160504
  Transmission Date: 20160815
  Serious: No
  Sender: FDA-Public Use
  Company Number: US-GLAXOSMITHKLINE-US2016055150

PATIENT
  Sex: Male

DRUGS (12)
  1. VENTOLIN HFA [Suspect]
     Active Substance: ALBUTEROL SULFATE
     Indication: CHRONIC OBSTRUCTIVE PULMONARY DISEASE
     Dosage: 2 PUFF(S), PRN
     Route: 055
  2. VENTOLIN HFA [Suspect]
     Active Substance: ALBUTEROL SULFATE
     Indication: WHEEZING
  3. SPIRIVA [Concomitant]
     Active Substance: TIOTROPIUM BROMIDE MONOHYDRATE
  4. VITAMIN D3 [Concomitant]
     Active Substance: CHOLECALCIFEROL
  5. LIPITOR [Concomitant]
     Active Substance: ATORVASTATIN CALCIUM
  6. MUCINEX [Concomitant]
     Active Substance: GUAIFENESIN
  7. LOW DOSE ASPIRIN [Concomitant]
     Active Substance: ASPIRIN
  8. ADVAIR DISKUS [Concomitant]
     Active Substance: FLUTICASONE PROPIONATE\SALMETEROL XINAFOATE
  9. COUMADIN [Concomitant]
     Active Substance: WARFARIN SODIUM
  10. LASIX [Concomitant]
     Active Substance: FUROSEMIDE
  11. DILTIAZEM [Concomitant]
     Active Substance: DILTIAZEM
  12. COLAZAL [Concomitant]
     Active Substance: BALSALAZIDE DISODIUM

REACTIONS (1)
  - Device use error [Unknown]
